FAERS Safety Report 10229348 (Version 1)
Quarter: 2014Q2

REPORT INFORMATION
  Report Type: Spontaneous
  Country: CA (occurrence: CA)
  Receive Date: 20140611
  Receipt Date: 20140611
  Transmission Date: 20141212
  Serious: Yes (Hospitalization)
  Sender: FDA-Public Use
  Company Number: CA-AMGEN-CANSP2014041656

PATIENT
  Age: 56 Year
  Sex: Female

DRUGS (1)
  1. SENSIPAR [Suspect]
     Indication: HYPERPARATHYROIDISM SECONDARY
     Dosage: 60 MG, UNK
     Route: 065
     Dates: start: 20130417

REACTIONS (2)
  - Gait disturbance [Not Recovered/Not Resolved]
  - Parathyroid disorder [Not Recovered/Not Resolved]
